FAERS Safety Report 8390626-5 (Version None)
Quarter: 2012Q2

REPORT INFORMATION
  Report Type: 
  Country: None (occurrence: None)
  Receive Date: 20120529
  Receipt Date: 20120521
  Transmission Date: 20120825
  Serious: Yes (Other)
  Sender: FDA-Public Use
  Company Number: US-JNJFOC-20120517259

PATIENT

DRUGS (2)
  1. ULTRAM [Suspect]
     Indication: HEADACHE
     Dosage: 6 TABLETS A DAY
     Route: 065
     Dates: start: 19900101
  2. ULTRAM [Suspect]
     Indication: DIABETIC NEUROPATHY
     Dosage: 6 TABLETS A DAY
     Route: 065
     Dates: start: 19900101

REACTIONS (7)
  - SUICIDAL IDEATION [None]
  - DRUG DEPENDENCE [None]
  - AGGRESSION [None]
  - DEPRESSION [None]
  - MUSCLE SPASMS [None]
  - WITHDRAWAL SYNDROME [None]
  - DRUG SCREEN FALSE POSITIVE [None]
